FAERS Safety Report 17166873 (Version 1)
Quarter: 2019Q4

REPORT INFORMATION
  Report Type: Report from Study
  Country: US (occurrence: US)
  Receive Date: 20191217
  Receipt Date: 20191217
  Transmission Date: 20200122
  Serious: Yes (Hospitalization, Other)
  Sender: FDA-Public Use
  Company Number: US-GILEAD-2019-0443231

PATIENT
  Sex: Female

DRUGS (5)
  1. AZTREONAM LYSINE [Suspect]
     Active Substance: AZTREONAM LYSINE
     Indication: CYSTIC FIBROSIS
     Dosage: 75 MG, TID FOR 28 DAYS ON THEN OFF FOR
     Route: 055
  2. TRIKAFTA [Concomitant]
     Active Substance: ELEXACAFTOR\IVACAFTOR\TEZACAFTOR
  3. CEFTAZIDIME. [Concomitant]
     Active Substance: CEFTAZIDIME
  4. PULMOZYME [Concomitant]
     Active Substance: DORNASE ALFA
  5. AZTREONAM LYSINE [Suspect]
     Active Substance: AZTREONAM LYSINE
     Dosage: 75 MG, TID FOR 28 DAYS ON THEN OFF FOR
     Route: 055
     Dates: start: 20191215

REACTIONS (2)
  - Cystic fibrosis [Unknown]
  - Liver disorder [Unknown]
